FAERS Safety Report 15022913 (Version 1)
Quarter: 2018Q2

REPORT INFORMATION
  Report Type: Spontaneous
  Country: US (occurrence: US)
  Receive Date: 20180618
  Receipt Date: 20180618
  Transmission Date: 20180711
  Serious: No
  Sender: FDA-Public Use
  Company Number: US-GALDERMA-US18003398

PATIENT
  Age: 40 Year
  Sex: Female

DRUGS (4)
  1. THYROID MEDICATION [Concomitant]
     Active Substance: UNSPECIFIED INGREDIENT
  2. PROACTIV SOLUTION DAILY PROTECTION PLUS SUNSCREEN SPF 30 [Suspect]
     Active Substance: AVOBENZONE\HOMOSALATE\OCTINOXATE\OCTISALATE\OXYBENZONE
     Indication: ACNE
     Route: 061
     Dates: start: 20180204, end: 20180212
  3. PROACTIV MD DEEP CLEANSING FACE WASH [Concomitant]
     Active Substance: COSMETICS
     Indication: ACNE
     Route: 061
     Dates: start: 20180204, end: 20180212
  4. PROACTIV MD ADAPALENE ACNE TREATMENT [Suspect]
     Active Substance: ADAPALENE
     Indication: ACNE
     Dosage: 0.1%
     Route: 061
     Dates: start: 20180204, end: 20180212

REACTIONS (6)
  - Skin burning sensation [Recovered/Resolved]
  - Inappropriate schedule of drug administration [Recovered/Resolved]
  - Eyelid irritation [Recovered/Resolved]
  - Overdose [Recovered/Resolved]
  - Pain of skin [Recovered/Resolved]
  - Rash macular [Recovered/Resolved]

NARRATIVE: CASE EVENT DATE: 20180204
